FAERS Safety Report 9321921 (Version 1)
Quarter: 2013Q2

REPORT INFORMATION
  Report Type: Spontaneous
  Country: US (occurrence: None)
  Receive Date: 20130528
  Receipt Date: 20130528
  Transmission Date: 20140414
  Serious: Yes (Other)
  Sender: FDA-Public Use
  Company Number: 130158

PATIENT
  Age: 33 Year
  Sex: Female

DRUGS (4)
  1. SUPREP BOWEL PREP KIT [Suspect]
     Indication: COLONOSCOPY
     Dosage: 2X6 OZ. BOTTLE/1X/PO
     Route: 048
     Dates: start: 20130514
  2. MAXIDE [Concomitant]
  3. SPIRONOLACTONE [Concomitant]
  4. HUMATE-P [Concomitant]

REACTIONS (3)
  - Product quality issue [None]
  - Malaise [None]
  - Electrolyte imbalance [None]
